FAERS Safety Report 26179655 (Version 1)
Quarter: 2025Q4

REPORT INFORMATION
  Report Type: Spontaneous
  Country: EU (occurrence: EU)
  Receive Date: 20251219
  Receipt Date: 20251219
  Transmission Date: 20260119
  Serious: Yes (Other)
  Sender: MYLAN
  Company Number: EU-MYLANLABS-2025M1107868

PATIENT
  Age: 76 Year
  Sex: Male

DRUGS (12)
  1. ABIRATERONE [Interacting]
     Active Substance: ABIRATERONE
     Indication: Prostate cancer stage IV
     Dosage: UNK
  2. ABIRATERONE [Interacting]
     Active Substance: ABIRATERONE
     Dosage: UNK
     Route: 065
  3. ABIRATERONE [Interacting]
     Active Substance: ABIRATERONE
     Dosage: UNK
     Route: 065
  4. ABIRATERONE [Interacting]
     Active Substance: ABIRATERONE
     Dosage: UNK
  5. ROSUVASTATIN [Interacting]
     Active Substance: ROSUVASTATIN
     Indication: Product used for unknown indication
     Dosage: UNK
  6. ROSUVASTATIN [Interacting]
     Active Substance: ROSUVASTATIN
     Dosage: UNK
     Route: 065
  7. ROSUVASTATIN [Interacting]
     Active Substance: ROSUVASTATIN
     Dosage: UNK
     Route: 065
  8. ROSUVASTATIN [Interacting]
     Active Substance: ROSUVASTATIN
     Dosage: UNK
  9. LEUPROLIDE ACETATE [Concomitant]
     Active Substance: LEUPROLIDE ACETATE
     Indication: Prostate cancer stage IV
     Dosage: UNK
  10. LEUPROLIDE ACETATE [Concomitant]
     Active Substance: LEUPROLIDE ACETATE
     Dosage: UNK
     Route: 065
  11. LEUPROLIDE ACETATE [Concomitant]
     Active Substance: LEUPROLIDE ACETATE
     Dosage: UNK
     Route: 065
  12. LEUPROLIDE ACETATE [Concomitant]
     Active Substance: LEUPROLIDE ACETATE
     Dosage: UNK

REACTIONS (6)
  - Drug interaction [Unknown]
  - Drug level increased [Unknown]
  - Acute kidney injury [Unknown]
  - Anuria [Unknown]
  - Paraplegia [Unknown]
  - Myopathy [Unknown]

NARRATIVE: CASE EVENT DATE: 20240101
